FAERS Safety Report 11330244 (Version 1)
Quarter: 2015Q3

REPORT INFORMATION
  Report Type: Spontaneous
  Country: GB (occurrence: GB)
  Receive Date: 20150803
  Receipt Date: 20150803
  Transmission Date: 20151125
  Serious: Yes (Hospitalization, Disabling)
  Sender: FDA-Public Use
  Company Number: GB-AUROBINDO-AUR-APL-2015-06795

PATIENT
  Age: 40 Year
  Sex: Female
  Weight: 46.71 kg

DRUGS (2)
  1. ERYTHROMYCIN 500 MG [Suspect]
     Active Substance: ERYTHROMYCIN
     Indication: VAGINAL INFECTION
     Dosage: 500 MG, FOUR TIMES/DAY
     Route: 048
     Dates: start: 20140924, end: 20140929
  2. METRONIDAZOLE 400MG [Suspect]
     Active Substance: METRONIDAZOLE
     Indication: VAGINAL INFECTION
     Dosage: 400 MG, 3 TIMES A DAY
     Route: 048
     Dates: start: 20140924, end: 20140929

REACTIONS (9)
  - Balance disorder [Not Recovered/Not Resolved]
  - Mental status changes [Not Recovered/Not Resolved]
  - Headache [Not Recovered/Not Resolved]
  - Oral candidiasis [Not Recovered/Not Resolved]
  - Sensory disturbance [Not Recovered/Not Resolved]
  - Clostridium difficile infection [Not Recovered/Not Resolved]
  - Gastrooesophageal reflux disease [Not Recovered/Not Resolved]
  - Muscular weakness [Not Recovered/Not Resolved]
  - Vertigo [Not Recovered/Not Resolved]

NARRATIVE: CASE EVENT DATE: 20140926
